FAERS Safety Report 24744586 (Version 1)
Quarter: 2024Q4

REPORT INFORMATION
  Report Type: Spontaneous
  Country: US (occurrence: US)
  Receive Date: 20241217
  Receipt Date: 20241217
  Transmission Date: 20250115
  Serious: Yes (Other)
  Sender: MAYNE
  Company Number: US-MAYNE PHARMA-2024MYN000598

PATIENT

DRUGS (1)
  1. NEXTSTELLIS [Suspect]
     Active Substance: DROSPIRENONE\ESTETROL MONOHYDRATE
     Indication: Contraception
     Route: 065

REACTIONS (3)
  - Pregnancy on oral contraceptive [Unknown]
  - Exposure during pregnancy [Unknown]
  - Drug ineffective [Unknown]
